FAERS Safety Report 10048772 (Version 1)
Quarter: 2014Q1

REPORT INFORMATION
  Report Type: Spontaneous
  Country: US (occurrence: US)
  Receive Date: 20140331
  Receipt Date: 20140331
  Transmission Date: 20141002
  Serious: Yes (Other)
  Sender: FDA-Public Use
  Company Number: US-FRI-1000065852

PATIENT
  Age: 63 Year
  Sex: Female

DRUGS (4)
  1. VIIBRYD [Suspect]
     Indication: DEPRESSION
     Dosage: 20MG
     Route: 048
     Dates: start: 201403, end: 20140321
  2. SYNTHROID [Concomitant]
     Dosage: 50MG (FREQUENCY UNKNOWN)
  3. PRILOSEC [Concomitant]
     Indication: HIATUS HERNIA
     Dosage: 40MG (FREQUENCY UNKNOWN)
  4. METHADONE [Concomitant]
     Dosage: 60MG (FREQUENCY UNKNOWN)

REACTIONS (15)
  - Hypertension [Recovered/Resolved]
  - Insomnia [Recovered/Resolved]
  - Decreased appetite [Recovered/Resolved]
  - Diarrhoea [Recovered/Resolved]
  - Nausea [Unknown]
  - Pyrexia [Recovered/Resolved]
  - Urine output decreased [Recovered/Resolved]
  - Musculoskeletal stiffness [Recovered/Resolved]
  - Depression [Recovered/Resolved]
  - Night sweats [Recovered/Resolved]
  - Mania [Recovered/Resolved]
  - Anxiety [Recovered/Resolved]
  - Restlessness [Recovered/Resolved]
  - Irritability [Unknown]
  - Hypotension [Recovered/Resolved]
